FAERS Safety Report 10463461 (Version 1)
Quarter: 2014Q3

REPORT INFORMATION
  Report Type: Spontaneous
  Country: US (occurrence: None)
  Receive Date: 20140918
  Receipt Date: 20140918
  Transmission Date: 20150326
  Serious: Yes (Hospitalization)
  Sender: FDA-Public Use
  Company Number: None

PATIENT
  Age: 17 Year
  Sex: Female
  Weight: 79.38 kg

DRUGS (1)
  1. HYDROCORTISONE. [Suspect]
     Active Substance: HYDROCORTISONE
     Indication: ADDISON^S DISEASE
     Route: 048

REACTIONS (6)
  - Product substitution issue [None]
  - Reaction to drug excipients [None]
  - Vomiting [None]
  - Product quality issue [None]
  - Adverse drug reaction [None]
  - Malaise [None]
